FAERS Safety Report 5339110-3 (Version None)
Quarter: 2007Q2

REPORT INFORMATION
  Report Type: 
  Country: None (occurrence: None)
  Receive Date: 20070330
  Receipt Date: 20060802
  Transmission Date: 20071010
  Serious: Yes (Hospitalization)
  Sender: FDA-Public Use
  Company Number: 2006EN000146

PATIENT
  Age: 12 Year
  Sex: Female

DRUGS (1)
  1. ONCASPAR [Suspect]
     Indication: ACUTE LYMPHOCYTIC LEUKAEMIA
     Dosage: 2500 IU

REACTIONS (8)
  - DRUG SPECIFIC ANTIBODY PRESENT [None]
  - DYSPNOEA [None]
  - HYPERSENSITIVITY [None]
  - NAUSEA [None]
  - RASH [None]
  - SWELLING [None]
  - URTICARIA [None]
  - WHEEZING [None]
